FAERS Safety Report 6428253-9 (Version None)
Quarter: 2009Q4

REPORT INFORMATION
  Report Type: 
  Country: None (occurrence: None)
  Receive Date: 20091105
  Receipt Date: 20091027
  Transmission Date: 20100525
  Serious: Yes (Other)
  Sender: FDA-Public Use
  Company Number: TR-BAYER-200937156GPV

PATIENT
  Age: 32 Year
  Sex: Female

DRUGS (5)
  1. FLUDARABINE [Suspect]
     Indication: ACUTE MYELOID LEUKAEMIA
     Route: 042
  2. CYTOSINE ARABINOSIDE [Suspect]
     Indication: ACUTE MYELOID LEUKAEMIA
     Route: 042
  3. IDARUBICIN HCL [Suspect]
     Indication: ACUTE MYELOID LEUKAEMIA
     Dosage: DAY 1-3
     Route: 042
  4. RED BLOOD CELLS [Concomitant]
     Indication: ACUTE MYELOID LEUKAEMIA
  5. PLATELETS [Concomitant]
     Indication: ACUTE MYELOID LEUKAEMIA

REACTIONS (1)
  - INTRA-UTERINE DEATH [None]
